FAERS Safety Report 9029081 (Version 2)
Quarter: 2013Q1

REPORT INFORMATION
  Report Type: Spontaneous
  Country: US (occurrence: US)
  Receive Date: 20130122
  Receipt Date: 20130208
  Transmission Date: 20140127
  Serious: No
  Sender: FDA-Public Use
  Company Number: US-ROCHE-1180651

PATIENT
  Sex: Female

DRUGS (1)
  1. TAMIFLU [Suspect]
     Indication: INFLUENZA
     Dosage: 6 MG/ML
     Route: 048
     Dates: start: 20130112, end: 20130117

REACTIONS (2)
  - Wrong technique in drug usage process [Unknown]
  - Incorrect dose administered [Unknown]
